FAERS Safety Report 15699756 (Version 1)
Quarter: 2018Q4

REPORT INFORMATION
  Report Type: Spontaneous
  Country: FR (occurrence: FR)
  Receive Date: 20181207
  Receipt Date: 20181207
  Transmission Date: 20190205
  Serious: Yes (Hospitalization)
  Sender: FDA-Public Use
  Company Number: FR-PFIZER INC-2018501018

PATIENT
  Age: 87 Year
  Sex: Male
  Weight: 67 kg

DRUGS (2)
  1. XALKORI [Suspect]
     Active Substance: CRIZOTINIB
     Indication: NON-SMALL CELL LUNG CANCER
     Dosage: 500 MG, 1X/DAY
     Route: 048
     Dates: start: 20180929, end: 20181014
  2. JOSIR [Concomitant]
     Active Substance: TAMSULOSIN
     Indication: PROSTATIC ADENOMA

REACTIONS (2)
  - Cardiac failure acute [Recovered/Resolved]
  - Diarrhoea [Recovered/Resolved]

NARRATIVE: CASE EVENT DATE: 20181003
